FAERS Safety Report 19733040 (Version 1)
Quarter: 2021Q3

REPORT INFORMATION
  Report Type: Spontaneous
  Country: FR (occurrence: FR)
  Receive Date: 20210823
  Receipt Date: 20210823
  Transmission Date: 20211014
  Serious: Yes (Life-Threatening, Other)
  Sender: FDA-Public Use
  Company Number: FR-DENTSPLY-2021SCDP000232

PATIENT
  Sex: Male

DRUGS (1)
  1. XYLOCAINE WITH ADRENALINE (EPINEPHRINE) [Suspect]
     Active Substance: EPINEPHRINE BITARTRATE\LIDOCAINE HYDROCHLORIDE
     Indication: ENDOSCOPY
     Dosage: 1200 MILLIGRAM
     Dates: start: 20210618

REACTIONS (2)
  - Seizure [None]
  - Oxygen saturation abnormal [None]
